FAERS Safety Report 5164175-1 (Version None)
Quarter: 2006Q4

REPORT INFORMATION
  Report Type: 
  Country: None (occurrence: None)
  Receive Date: 20060918
  Receipt Date: 20050919
  Transmission Date: 20070319
  Serious: Yes (Hospitalization)
  Sender: FDA-Public Use
  Company Number: US-JNJFOC-20050904959

PATIENT
  Age: 15 Year
  Sex: Female

DRUGS (2)
  1. TOPAMAX [Suspect]
     Indication: COMPLEX PARTIAL SEIZURES
     Dosage: 100 MG, 2 IN 1 DAY, ORAL
     Route: 048
     Dates: start: 20001121
  2. FOLIC ACID [Concomitant]

REACTIONS (2)
  - PANCREATITIS [None]
  - SALIVARY GLAND CALCULUS [None]
